FAERS Safety Report 4459285-8 (Version None)
Quarter: 2004Q3

REPORT INFORMATION
  Report Type: 
  Country: None (occurrence: None)
  Receive Date: 20040914
  Receipt Date: 20040827
  Transmission Date: 20050211
  Serious: Yes (Other)
  Sender: FDA-Public Use
  Company Number: 601523

PATIENT
  Sex: Male
  Weight: 70 kg

DRUGS (15)
  1. GAMMAGARD S/D [Suspect]
     Indication: IMMUNODEFICIENCY COMMON VARIABLE
     Dosage: 30 GM; Q3W
     Dates: start: 20030903, end: 20040825
  2. GAMMAGARD S/D [Suspect]
  3. GAMMAGARD S/D [Suspect]
  4. GAMMAGARD S/D [Suspect]
  5. GAMMAGARD S/D [Suspect]
  6. GAMMAGARD S/D [Suspect]
  7. GAMMAGARD S/D [Suspect]
  8. GAMMAGARD S/D [Suspect]
  9. GAMMAGARD S/D [Suspect]
  10. GAMMAGARD S/D [Suspect]
  11. GAMMAGARD S/D [Suspect]
  12. GAMMAGARD S/D [Suspect]
  13. GAMMAGARD S/D [Suspect]
  14. GAMMAGARD S/D [Suspect]
  15. GAMMAGARD S/D [Suspect]

REACTIONS (2)
  - ALANINE AMINOTRANSFERASE INCREASED [None]
  - HEPATITIS C POSITIVE [None]
